FAERS Safety Report 14152878 (Version 1)
Quarter: 2017Q4

REPORT INFORMATION
  Report Type: Spontaneous
  Country: HK (occurrence: HK)
  Receive Date: 20171102
  Receipt Date: 20171102
  Transmission Date: 20180321
  Serious: Yes (Hospitalization, Other)
  Sender: FDA-Public Use
  Company Number: HK-REGENERON PHARMACEUTICALS, INC.-2017-25470

PATIENT

DRUGS (1)
  1. EYLEA [Suspect]
     Active Substance: AFLIBERCEPT
     Indication: MACULOPATHY
     Dosage: PATIENT RECEIVED 19 DOSES OF EYLEA
     Route: 031
     Dates: start: 20140106, end: 20170816

REACTIONS (3)
  - Inflammation [Recovered/Resolved]
  - Pyoderma gangrenosum [Recovered/Resolved]
  - Pyoderma gangrenosum [Recovered/Resolved]

NARRATIVE: CASE EVENT DATE: 20170326
